FAERS Safety Report 5093444-9 (Version None)
Quarter: 2006Q3

REPORT INFORMATION
  Report Type: 
  Country: None (occurrence: None)
  Receive Date: 20060828
  Receipt Date: 20060816
  Transmission Date: 20061208
  Serious: Yes (Hospitalization)
  Sender: FDA-Public Use
  Company Number: 008-C5013-06010639

PATIENT
  Age: 74 Year
  Sex: Female
  Weight: 56 kg

DRUGS (13)
  1. REVLIMID [Suspect]
     Indication: MULTIPLE MYELOMA
     Dosage: SEE IMAGE
     Route: 048
     Dates: start: 20041001, end: 20060122
  2. REVLIMID [Suspect]
     Indication: MULTIPLE MYELOMA
     Dosage: SEE IMAGE
     Route: 048
     Dates: start: 20060214, end: 20060403
  3. DEXAMETHASONE TAB [Suspect]
     Indication: MULTIPLE MYELOMA
  4. ASPIRIN [Concomitant]
  5. LOTRISONE [Concomitant]
  6. MAXOLON [Concomitant]
  7. ZOMETA [Concomitant]
  8. ACETAMINOPHEN [Concomitant]
  9. TRAMADOL HCL [Concomitant]
  10. FENTANYL [Concomitant]
  11. PANTOPRAZOLE SODIUM [Concomitant]
  12. LOSEC (OMEPRAZOLE) [Concomitant]
  13. MAXOLON [Concomitant]

REACTIONS (20)
  - ANAEMIA [None]
  - BACK PAIN [None]
  - BLOOD ALBUMIN DECREASED [None]
  - BLOOD CALCIUM DECREASED [None]
  - BLOOD UREA DECREASED [None]
  - CONSTIPATION [None]
  - DISEASE PROGRESSION [None]
  - HIATUS HERNIA [None]
  - HYPOKALAEMIA [None]
  - LIPASE INCREASED [None]
  - LYMPHOCYTE COUNT DECREASED [None]
  - MALAISE [None]
  - MEAN CELL VOLUME ABNORMAL [None]
  - MELAENA [None]
  - NAUSEA [None]
  - OESOPHAGITIS [None]
  - PLEURAL EFFUSION [None]
  - ROTATOR CUFF SYNDROME [None]
  - SPINAL FRACTURE [None]
  - VOMITING [None]
